FAERS Safety Report 8236573-0 (Version None)
Quarter: 2012Q1

REPORT INFORMATION
  Report Type: 
  Country: None (occurrence: None)
  Receive Date: 20120327
  Receipt Date: 20120315
  Transmission Date: 20120608
  Serious: Yes (Congenital Anomaly, Other)
  Sender: FDA-Public Use
  Company Number: GB-COVIDIEN/TYCO HEALTHCARE/MALLINCKRODT-T201201184

PATIENT
  Age: 18 Month

DRUGS (3)
  1. HEROIN [Suspect]
     Dosage: UNK
  2. METHADOSE [Suspect]
     Dosage: UNK
  3. DIAZEPAM [Suspect]
     Dosage: UNK

REACTIONS (4)
  - FOETAL EXPOSURE DURING PREGNANCY [None]
  - NYSTAGMUS [None]
  - VISUAL IMPAIRMENT [None]
  - STRABISMUS [None]
